FAERS Safety Report 10445876 (Version 2)
Quarter: 2015Q1

REPORT INFORMATION
  Report Type: Spontaneous
  Country: US (occurrence: US)
  Receive Date: 20140910
  Receipt Date: 20150204
  Transmission Date: 20150720
  Serious: No
  Sender: FDA-Public Use
  Company Number: US-GILEAD-2014-0114760

PATIENT
  Age: 50 Year
  Sex: Female

DRUGS (12)
  1. LETAIRIS [Suspect]
     Active Substance: AMBRISENTAN
     Dosage: 10 MG, QD
     Route: 065
     Dates: start: 20140805
  2. LYRICA [Concomitant]
     Active Substance: PREGABALIN
  3. KALETRA [Concomitant]
     Active Substance: LOPINAVIR\RITONAVIR
  4. REMODULIN [Concomitant]
     Active Substance: TREPROSTINIL
  5. ADEMPAS [Concomitant]
     Active Substance: RIOCIGUAT
  6. DETROL [Concomitant]
     Active Substance: TOLTERODINE TARTRATE
  7. TRUVADA [Suspect]
     Active Substance: EMTRICITABINE\TENOFOVIR DISOPROXIL FUMARATE
     Indication: PRODUCT USED FOR UNKNOWN INDICATION
     Route: 065
  8. VALIUM [Concomitant]
     Active Substance: DIAZEPAM
  9. OXYCODONE [Concomitant]
     Active Substance: OXYCODONE
  10. LETAIRIS [Suspect]
     Active Substance: AMBRISENTAN
     Indication: PULMONARY HYPERTENSION
     Dosage: 10 MG, QD
     Route: 065
     Dates: start: 20140609, end: 20140809
  11. LETAIRIS [Suspect]
     Active Substance: AMBRISENTAN
     Indication: COR PULMONALE CHRONIC
     Dosage: 5 UNK, UNK
     Route: 065
  12. LIDOCAINE. [Concomitant]
     Active Substance: LIDOCAINE

REACTIONS (3)
  - Malaise [Recovered/Resolved]
  - Nasal congestion [Recovered/Resolved]
  - Headache [Not Recovered/Not Resolved]

NARRATIVE: CASE EVENT DATE: 20140809
